FAERS Safety Report 17616792 (Version 1)
Quarter: 2020Q2

REPORT INFORMATION
  Report Type: Spontaneous
  Country: US (occurrence: US)
  Receive Date: 20200401
  Receipt Date: 20200401
  Transmission Date: 20200713
  Serious: Yes (Death, Hospitalization)
  Sender: FDA-Public Use
  Company Number: None

PATIENT
  Age: 61 Year
  Sex: Male
  Weight: 110.1 kg

DRUGS (3)
  1. LENALIDOMIDE (CC-5013) [Suspect]
     Active Substance: LENALIDOMIDE
     Dates: end: 20170116
  2. DEXAMETHASONE. [Suspect]
     Active Substance: DEXAMETHASONE
     Dates: end: 20161129
  3. VELCADE [Suspect]
     Active Substance: BORTEZOMIB
     Dates: end: 20161129

REACTIONS (10)
  - Pancreatitis [None]
  - Blood culture positive [None]
  - Bacterial infection [None]
  - Acute kidney injury [None]
  - Thrombocytopenia [None]
  - Hepatic cancer [None]
  - Upper gastrointestinal haemorrhage [None]
  - Hypereosinophilic syndrome [None]
  - Hypotension [None]
  - Haemodialysis [None]

NARRATIVE: CASE EVENT DATE: 20170201
